FAERS Safety Report 6927801-X (Version None)
Quarter: 2010Q3

REPORT INFORMATION
  Report Type: 
  Country: None (occurrence: None)
  Receive Date: 20100816
  Receipt Date: 20100816
  Transmission Date: 20110219
  Serious: Yes (Death, Life-Threatening, Hospitalization)
  Sender: FDA-Public Use
  Company Number: None

PATIENT
  Age: 23 Year
  Sex: Female
  Weight: 65.5 kg

DRUGS (4)
  1. ETANERCEPT 50 MG PFIZER [Suspect]
     Indication: RHEUMATOID ARTHRITIS
     Dosage: 50 MG ONCE WEEKLY SQ
     Route: 058
  2. ETANERCEPT 50 MG PFIZER [Suspect]
     Indication: SYSTEMIC LUPUS ERYTHEMATOSUS
     Dosage: 50 MG ONCE WEEKLY SQ
     Route: 058
  3. PREDNISONE 10 MG [Suspect]
     Indication: RHEUMATOID ARTHRITIS
     Dosage: 10 MG BID PO
     Route: 048
  4. PREDNISONE 10 MG [Suspect]
     Indication: SYSTEMIC LUPUS ERYTHEMATOSUS
     Dosage: 10 MG BID PO
     Route: 048

REACTIONS (14)
  - ABASIA [None]
  - BALANCE DISORDER [None]
  - CEREBELLAR INFARCTION [None]
  - DECREASED APPETITE [None]
  - HEADACHE [None]
  - HYPOAESTHESIA FACIAL [None]
  - IMMUNOSUPPRESSION [None]
  - JC VIRUS INFECTION [None]
  - LEUKOENCEPHALOPATHY [None]
  - MUSCLE RIGIDITY [None]
  - NYSTAGMUS [None]
  - ORAL CANDIDIASIS [None]
  - VISUAL IMPAIRMENT [None]
  - WEIGHT DECREASED [None]
